FAERS Safety Report 11787730 (Version 2)
Quarter: 2015Q4

REPORT INFORMATION
  Report Type: Spontaneous
  Country: US (occurrence: US)
  Receive Date: 20151130
  Receipt Date: 20151208
  Transmission Date: 20160305
  Serious: No
  Sender: FDA-Public Use
  Company Number: US-BAYER-2015-476030

PATIENT
  Age: 2 Year
  Sex: Male
  Weight: 13.61 kg

DRUGS (1)
  1. CHILDREN CLARITIN ALLERGY [Suspect]
     Active Substance: LORATADINE
     Dosage: 2 1/2 AND 3 TEASPOONS
     Route: 048

REACTIONS (3)
  - Somnolence [None]
  - Off label use [None]
  - Product use issue [None]
